FAERS Safety Report 5715651-1 (Version None)
Quarter: 2008Q2

REPORT INFORMATION
  Report Type: 
  Country: None (occurrence: None)
  Receive Date: 20080423
  Receipt Date: 20080423
  Transmission Date: 20081010
  Serious: Yes (Hospitalization)
  Sender: FDA-Public Use
  Company Number: None

PATIENT
  Age: 55 Year
  Sex: Male
  Weight: 63.5036 kg

DRUGS (6)
  1. CISPLATIN [Suspect]
     Indication: SQUAMOUS CELL CARCINOMA
     Dosage: 54MG WEEKLY IV
     Route: 042
     Dates: start: 20060104
  2. CISPLATIN [Suspect]
     Indication: SQUAMOUS CELL CARCINOMA
     Dosage: 54MG WEEKLY IV
     Route: 042
     Dates: start: 20060110
  3. CISPLATIN [Suspect]
     Indication: SQUAMOUS CELL CARCINOMA
     Dosage: 54MG WEEKLY IV
     Route: 042
     Dates: start: 20060124
  4. CPT-11 90MG [Suspect]
     Indication: SQUAMOUS CELL CARCINOMA
     Dosage: 90MG WEEKLY IV
     Route: 042
     Dates: start: 20060104
  5. CPT-11 90MG [Suspect]
     Indication: SQUAMOUS CELL CARCINOMA
     Dosage: 90MG WEEKLY IV
     Route: 042
     Dates: start: 20060110
  6. CPT-11 90MG [Suspect]
     Indication: SQUAMOUS CELL CARCINOMA
     Dosage: 90MG WEEKLY IV
     Route: 042
     Dates: start: 20060124

REACTIONS (5)
  - ASTHENIA [None]
  - DISEASE PROGRESSION [None]
  - HYPOVOLAEMIA [None]
  - PHARYNGEAL OEDEMA [None]
  - PULMONARY MASS [None]
